FAERS Safety Report 23692406 (Version 3)
Quarter: 2024Q2

REPORT INFORMATION
  Report Type: Report from Study
  Country: US (occurrence: US)
  Receive Date: 20240401
  Receipt Date: 20240502
  Transmission Date: 20240715
  Serious: Yes (Hospitalization)
  Sender: FDA-Public Use
  Company Number: US-Eisai-EC-2024-162839

PATIENT
  Age: 59 Year
  Sex: Female

DRUGS (2)
  1. LENVIMA [Suspect]
     Active Substance: LENVATINIB
     Indication: Endometrial neoplasm
     Route: 048
     Dates: start: 20240104, end: 202403
  2. KEYTRUDA [Suspect]
     Active Substance: PEMBROLIZUMAB
     Indication: Endometrial cancer
     Dosage: DOSE AND FREQUENCY UNKNOWN
     Dates: end: 202403

REACTIONS (11)
  - Diarrhoea [Recovered/Resolved]
  - Thyroid disorder [Recovered/Resolved]
  - Taste disorder [Recovered/Resolved]
  - Decreased appetite [Recovered/Resolved]
  - Weight decreased [Recovered/Resolved]
  - Abdominal pain [Not Recovered/Not Resolved]
  - Dysuria [Not Recovered/Not Resolved]
  - Renal impairment [Recovered/Resolved]
  - Dehydration [Recovered/Resolved]
  - Pulmonary embolism [Not Recovered/Not Resolved]
  - Thrombosis [Not Recovered/Not Resolved]

NARRATIVE: CASE EVENT DATE: 20240101
